FAERS Safety Report 8849694 (Version 2)
Quarter: 2013Q2

REPORT INFORMATION
  Report Type: Spontaneous
  Country: US (occurrence: None)
  Receive Date: 20120426
  Receipt Date: 20120703
  Transmission Date: 20140414
  Serious: Yes (Other)
  Sender: FDA-Public Use
  Company Number: PHEH2012US004447

PATIENT
  Age: 55 Year
  Sex: Female

DRUGS (1)
  1. GILENYA [Suspect]
     Indication: MULTIPLE SCLEROSIS
     Route: 048
     Dates: start: 20120102

REACTIONS (10)
  - Neurological symptom [None]
  - Fatigue [None]
  - Speech disorder [None]
  - Malaise [None]
  - Hypoaesthesia [None]
  - Muscular weakness [None]
  - Tremor [None]
  - Gait disturbance [None]
  - Dizziness [None]
  - Vision blurred [None]
